FAERS Safety Report 25866448 (Version 1)
Quarter: 2025Q3

REPORT INFORMATION
  Report Type: Spontaneous
  Country: AU (occurrence: AU)
  Receive Date: 20250930
  Receipt Date: 20250930
  Transmission Date: 20251020
  Serious: Yes (Other)
  Sender: MERCK SHARP & DOHME LLC
  Company Number: AU-009507513-2333333

PATIENT
  Age: 3 Year
  Sex: Male

DRUGS (3)
  1. MEASLES-MUMPS-RUBELLA VIRUS VACCINE, LIVE [Suspect]
     Active Substance: MEASLES-MUMPS-RUBELLA VIRUS VACCINE, LIVE
     Route: 065
     Dates: start: 20250220, end: 20250220
  2. NIMENRIX [Suspect]
     Active Substance: CLOSTRIDIUM TETANI TOXOID ANTIGEN (FORMALDEHYDE INACTIVATED)\MENINGOCOCCAL POLYSACCHARIDE VACCINE, G
     Dates: start: 20250220, end: 20250220
  3. M-M-R II [Suspect]
     Active Substance: MEASLES VIRUS STRAIN ENDERS^ ATTENUATED EDMONSTON LIVE ANTIGEN\MUMPS VIRUS STRAIN B LEVEL JERYL LYNN
     Dates: start: 20250220, end: 20250220

REACTIONS (12)
  - Coma scale abnormal [Unknown]
  - Encephalitis [Unknown]
  - Eye movement disorder [Unknown]
  - Gait inability [Unknown]
  - Guillain-Barre syndrome [Unknown]
  - Headache [Unknown]
  - Lethargy [Unknown]
  - Muscle tightness [Unknown]
  - Neck pain [Unknown]
  - Oropharyngeal pain [Unknown]
  - Pain in extremity [Unknown]
  - Pyrexia [Unknown]

NARRATIVE: CASE EVENT DATE: 20250307
